FAERS Safety Report 6119673-0 (Version None)
Quarter: 2009Q1

REPORT INFORMATION
  Report Type: 
  Country: None (occurrence: None)
  Receive Date: 20090316
  Receipt Date: 20090312
  Transmission Date: 20090719
  Serious: Yes (Death, Hospitalization, Other)
  Sender: FDA-Public Use
  Company Number: PHHO2006MX21045

PATIENT
  Sex: Female

DRUGS (3)
  1. DIOVAN HCT [Suspect]
     Indication: HYPERTENSION
     Dosage: 1 TABLET DAILY (160/12.5MG)
     Route: 048
     Dates: start: 20050401, end: 20070801
  2. CLONAZEPAM [Concomitant]
     Indication: NERVOUSNESS
     Dosage: UNK
  3. TELMISARTAN [Concomitant]
     Indication: NERVOUSNESS
     Dosage: UNK

REACTIONS (8)
  - ABDOMINAL PAIN [None]
  - CARDIAC ARREST [None]
  - CONSTIPATION [None]
  - DYSPNOEA [None]
  - GASTRIC OPERATION [None]
  - GASTROINTESTINAL OBSTRUCTION [None]
  - PNEUMONIA [None]
  - TRACHEOSTOMY [None]
